FAERS Safety Report 6573148-3 (Version None)
Quarter: 2010Q1

REPORT INFORMATION
  Report Type: 
  Country: None (occurrence: None)
  Receive Date: 20100208
  Receipt Date: 20100201
  Transmission Date: 20100710
  Serious: Yes (Death, Other)
  Sender: FDA-Public Use
  Company Number: US-ELI_LILLY_AND_COMPANY-US200910007507

PATIENT
  Sex: Female

DRUGS (12)
  1. FORTEO [Suspect]
     Indication: OSTEOPOROSIS
     Dosage: 20 UG, UNK
     Route: 058
     Dates: start: 20090801, end: 20090101
  2. HYDROCORTISONE [Concomitant]
     Dosage: 20 MG, UNK
  3. REMERON [Concomitant]
     Dosage: 15 MG, EACH EVENING
  4. PHENERGAN HCL [Concomitant]
     Indication: NAUSEA
     Dosage: 50 MG, AS NEEDED
  5. FOSAMAX [Concomitant]
     Dates: end: 20090101
  6. DILTIAZEM HCL [Concomitant]
     Dosage: 120 MG, 2/D
  7. CAPTOPRIL [Concomitant]
     Dosage: 12.5 MG, 2/D
  8. VITAMIN B-12 [Concomitant]
     Indication: PERNICIOUS ANAEMIA
     Dosage: UNK, MONTHLY (1/M)
  9. LORAZEPAM [Concomitant]
     Dosage: 0.5 MG, EACH EVENING
  10. ALBUTEROL [Concomitant]
     Dosage: UNK, AS NEEDED
  11. CALCIUM W/VITAMIN D NOS [Concomitant]
     Dosage: UNK, 2/D
  12. SYMBICORT [Concomitant]

REACTIONS (2)
  - CARDIAC DISORDER [None]
  - DEATH [None]
